FAERS Safety Report 22128280 (Version 1)
Quarter: 2023Q1

REPORT INFORMATION
  Report Type: Spontaneous
  Country: US (occurrence: US)
  Receive Date: 20230323
  Receipt Date: 20230323
  Transmission Date: 20230417
  Serious: No
  Sender: FDA-Public Use
  Company Number: US-ALLERGAN-2301547US

PATIENT
  Age: 55 Year
  Sex: Female

DRUGS (3)
  1. VRAYLAR [Suspect]
     Active Substance: CARIPRAZINE
     Indication: Bipolar II disorder
     Dosage: 1.5 MG
  2. VRAYLAR [Suspect]
     Active Substance: CARIPRAZINE
     Indication: Depression
  3. VRAYLAR [Suspect]
     Active Substance: CARIPRAZINE
     Indication: Anxiety

REACTIONS (2)
  - Off label use [Unknown]
  - Weight increased [Unknown]
